FAERS Safety Report 4304454-0 (Version None)
Quarter: 2004Q1

REPORT INFORMATION
  Report Type: 
  Country: None (occurrence: None)
  Receive Date: 20040225
  Receipt Date: 20040213
  Transmission Date: 20041129
  Serious: Yes (Other)
  Sender: FDA-Public Use
  Company Number: GB-GDP-0410944

PATIENT
  Age: 19 Year
  Sex: Female

DRUGS (2)
  1. BENZOYL PEROXIDE 5% UNKNOWN TOPICAL PRODUCT [Suspect]
     Indication: ACNE
     Dosage: 1 APP QD TP
     Route: 061
     Dates: start: 20040108, end: 20040121
  2. CLINDAMYCIN [Suspect]
     Indication: ACNE
     Dosage: 1 APP QD TP
     Route: 061
     Dates: start: 20040108, end: 20040121

REACTIONS (5)
  - DERMATITIS ALLERGIC [None]
  - EYE SWELLING [None]
  - PERIORBITAL OEDEMA [None]
  - SWELLING FACE [None]
  - WOUND SECRETION [None]
